FAERS Safety Report 7967792-6 (Version None)
Quarter: 2011Q4

REPORT INFORMATION
  Report Type: 
  Country: None (occurrence: None)
  Receive Date: 20111207
  Receipt Date: 20111122
  Transmission Date: 20120403
  Serious: Yes (Death)
  Sender: FDA-Public Use
  Company Number: JPI-P-018470

PATIENT
  Age: 54 Year
  Sex: Male

DRUGS (4)
  1. XYREM [Suspect]
     Indication: SLEEP DISORDER
     Dosage: 6 GM (3 GM, 2 IN 1 D), ORAL, 4 GM (2 GM, 2 IN 1 D), ORAL, 6 GM (3 GM, 2 IN 1 D), ORAL, 4 GM (2 GM, 2
     Route: 048
     Dates: start: 20110805, end: 20111103
  2. XYREM [Suspect]
     Indication: SLEEP DISORDER
     Dosage: 6 GM (3 GM, 2 IN 1 D), ORAL, 4 GM (2 GM, 2 IN 1 D), ORAL, 6 GM (3 GM, 2 IN 1 D), ORAL, 4 GM (2 GM, 2
     Route: 048
     Dates: start: 20100309
  3. XYREM [Suspect]
     Indication: SLEEP DISORDER
     Dosage: 6 GM (3 GM, 2 IN 1 D), ORAL, 4 GM (2 GM, 2 IN 1 D), ORAL, 6 GM (3 GM, 2 IN 1 D), ORAL, 4 GM (2 GM, 2
     Route: 048
     Dates: start: 20110107, end: 20110101
  4. XYREM [Suspect]
     Indication: SLEEP DISORDER
     Dosage: 6 GM (3 GM, 2 IN 1 D), ORAL, 4 GM (2 GM, 2 IN 1 D), ORAL, 6 GM (3 GM, 2 IN 1 D), ORAL, 4 GM (2 GM, 2
     Route: 048
     Dates: start: 20110211, end: 20110101

REACTIONS (1)
  - DEATH [None]
